FAERS Safety Report 7478542-4 (Version None)
Quarter: 2011Q2

REPORT INFORMATION
  Report Type: 
  Country: None (occurrence: None)
  Receive Date: 20110513
  Receipt Date: 20110504
  Transmission Date: 20111010
  Serious: Yes (Hospitalization, Other)
  Sender: FDA-Public Use
  Company Number: PT-SANOFI-AVENTIS-200819095GDDC

PATIENT
  Age: 55 Year
  Sex: Male
  Weight: 72.9 kg

DRUGS (12)
  1. MELPHALAN HYDROCHLORIDE [Suspect]
     Route: 048
     Dates: start: 20080826, end: 20080921
  2. OMEPRAZOLE [Concomitant]
  3. BROMAZEPAM [Concomitant]
     Dates: start: 20080915
  4. LISINOPRIL [Concomitant]
     Dosage: DOSE AS USED: UNK
     Dates: start: 20080820
  5. BLINDED THERAPY [Suspect]
     Dosage: DOSE UNIT: 6 MG/KG
     Route: 042
     Dates: start: 20080916, end: 20080916
  6. DOCETAXEL [Suspect]
     Dosage: DOSE UNIT: 75 MG/M**2
     Route: 042
     Dates: start: 20080916, end: 20080916
  7. METOCLOPRAMIDE [Concomitant]
     Dosage: DOSE AS USED: UNK
  8. GOSERELIN [Concomitant]
     Dosage: DOSE AS USED: UNK
  9. PRAVASTATIN [Concomitant]
     Dosage: DOSE AS USED: UNK
     Dates: start: 20080922
  10. ALL OTHER THERAPEUTIC PRODUCTS [Concomitant]
  11. BENESTAN [Concomitant]
     Dosage: DOSE AS USED: UNK
  12. PANTOPRAZOLE [Concomitant]
     Dosage: DOSE AS USED: UNK
     Dates: start: 20080921

REACTIONS (1)
  - ISCHAEMIC STROKE [None]
